FAERS Safety Report 7504197-6 (Version None)
Quarter: 2011Q2

REPORT INFORMATION
  Report Type: 
  Country: None (occurrence: None)
  Receive Date: 20110525
  Receipt Date: 20091122
  Transmission Date: 20111010
  Serious: Yes (Death, Hospitalization, Other)
  Sender: FDA-Public Use
  Company Number: US-BAYER-201011559NA

PATIENT
  Age: 76 Year
  Sex: Male
  Weight: 92.971 kg

DRUGS (13)
  1. VANCOMYCIN [Concomitant]
     Indication: INFECTED SKIN ULCER
     Dosage: 1 GM EVERY 18 HRS THEN PHARMACY DOSED
     Route: 042
     Dates: start: 20040628, end: 20040711
  2. COUMADIN [Concomitant]
     Dosage: 2.5 +#8211; 5 MG DAILY
     Route: 048
  3. DOPAMINE HCL [Concomitant]
     Dosage: 5 MCG/KG/MINUTE
     Route: 042
     Dates: start: 20040630, end: 20040711
  4. ACETYLSALICYLIC ACID SRT [Concomitant]
     Dosage: 325 MG, QD
     Route: 048
  5. FUROSEMIDE [Concomitant]
     Dosage: 80 MG, UNK
     Route: 048
  6. HEPARIN [Concomitant]
     Dosage: 33,000 UNITS
     Dates: start: 20040630, end: 20040630
  7. VERSED [Concomitant]
     Dosage: 2 MG BOLUSES
     Route: 042
     Dates: start: 20040730, end: 20040730
  8. HEPARIN [Concomitant]
     Dosage: 1000 UNITS / HOUR
     Route: 042
     Dates: start: 20040628
  9. TRASYLOL [Suspect]
     Indication: CORONARY ARTERY BYPASS
     Dosage: 100 ML; CONTINUOUS INFUSION 25 ML/HOUR
     Dates: start: 20040630, end: 20040630
  10. ZESTRIL [Concomitant]
     Dosage: UNK
     Dates: end: 19910101
  11. TRIAMTERENE AND HYDROCHLOROTHIAZIDE [Concomitant]
     Dosage: 50/25 MG DAILY
     Route: 048
  12. VERSED [Concomitant]
     Dosage: 2 MG, UNK
     Route: 042
     Dates: start: 20040628
  13. MANNITOL [Concomitant]
     Dosage: 100 ML OF 25 % IN PRIME
     Dates: start: 20040630, end: 20040630

REACTIONS (16)
  - CARDIAC DISORDER [None]
  - RENAL IMPAIRMENT [None]
  - ANHEDONIA [None]
  - ANXIETY [None]
  - EMOTIONAL DISTRESS [None]
  - CEREBROVASCULAR ACCIDENT [None]
  - ORGAN FAILURE [None]
  - RENAL FAILURE [None]
  - DEATH [None]
  - UNEVALUABLE EVENT [None]
  - PAIN [None]
  - DEPRESSION [None]
  - RENAL INJURY [None]
  - INJURY [None]
  - STRESS [None]
  - FEAR [None]
